FAERS Safety Report 21686227 (Version 4)
Quarter: 2023Q2

REPORT INFORMATION
  Report Type: Spontaneous
  Country: JP (occurrence: JP)
  Receive Date: 20221206
  Receipt Date: 20230503
  Transmission Date: 20230722
  Serious: Yes (Death, Hospitalization, Other)
  Sender: FDA-Public Use
  Company Number: JP-BRISTOL-MYERS SQUIBB COMPANY-BMS-2022-024432

PATIENT
  Age: 64 Year
  Sex: Male
  Weight: 44.2 kg

DRUGS (24)
  1. OPDIVO [Suspect]
     Active Substance: NIVOLUMAB
     Indication: Oesophageal carcinoma
     Dosage: UNK
     Route: 041
     Dates: start: 20210702, end: 20210917
  2. DOCETAXEL [Suspect]
     Active Substance: DOCETAXEL
     Indication: Oesophageal carcinoma
     Dosage: 113 MG
     Route: 042
     Dates: start: 20211005, end: 20220113
  3. MYCOPHENOLATE MOFETIL [Suspect]
     Active Substance: MYCOPHENOLATE MOFETIL
     Indication: Autoimmune hepatitis
     Dosage: EVERYDAY
     Dates: start: 20220221, end: 20220317
  4. MYCOPHENOLATE MOFETIL [Suspect]
     Active Substance: MYCOPHENOLATE MOFETIL
     Indication: Hepatic failure
     Dosage: EVERYDAY
     Dates: start: 20220411, end: 20220422
  5. MYCOPHENOLATE MOFETIL [Suspect]
     Active Substance: MYCOPHENOLATE MOFETIL
     Dosage: EVERYDAY
     Dates: start: 20220423, end: 20220425
  6. MYCOPHENOLATE MOFETIL [Suspect]
     Active Substance: MYCOPHENOLATE MOFETIL
     Dosage: EVERYDAY
     Dates: start: 20220318, end: 20220326
  7. PREDNISOLONE [Suspect]
     Active Substance: PREDNISOLONE
     Indication: Hepatic failure
     Dosage: EVERYDAY
     Dates: start: 20220224, end: 20220302
  8. PREDNISOLONE [Suspect]
     Active Substance: PREDNISOLONE
     Dosage: EVERYDAY
     Dates: start: 20220303, end: 20220317
  9. PREDNISOLONE [Suspect]
     Active Substance: PREDNISOLONE
     Dosage: EVERYDAY
     Dates: start: 20220318, end: 20220401
  10. PREDNISOLONE [Suspect]
     Active Substance: PREDNISOLONE
     Dosage: EVERYDAY
     Dates: start: 20220402
  11. PREDNISOLONE [Suspect]
     Active Substance: PREDNISOLONE
     Dosage: EVERYDAY
     Dates: start: 20220504, end: 20220510
  12. PREDNISOLONE [Suspect]
     Active Substance: PREDNISOLONE
     Dosage: EVERYDAY
     Dates: start: 20220511
  13. PREDNISOLONE [Suspect]
     Active Substance: PREDNISOLONE
     Dosage: EVERYDAY
     Dates: start: 20220217, end: 20220223
  14. PREDNISOLONE [Suspect]
     Active Substance: PREDNISOLONE
     Dates: start: 20220414, end: 20220419
  15. PREDNISOLONE [Suspect]
     Active Substance: PREDNISOLONE
     Dosage: EVERYDAY
     Dates: start: 20220420, end: 20220426
  16. PREDNISOLONE [Suspect]
     Active Substance: PREDNISOLONE
     Dosage: EVERYDAY
     Dates: start: 20220427, end: 20220503
  17. JANUVIA [Concomitant]
     Active Substance: SITAGLIPTIN PHOSPHATE
     Indication: Product used for unknown indication
     Dosage: 50 MG, EVERYDAY
     Route: 048
  18. JANUVIA [Concomitant]
     Active Substance: SITAGLIPTIN PHOSPHATE
     Dosage: 50 MG, EVERYDAY
     Route: 048
  19. JANUVIA [Concomitant]
     Active Substance: SITAGLIPTIN PHOSPHATE
     Dosage: 50 MG, EVERYDAY
     Route: 048
  20. AMLODIPINE [Concomitant]
     Active Substance: AMLODIPINE BESYLATE
     Indication: Product used for unknown indication
     Dosage: 5 MG, EVERYDAY
     Route: 048
  21. AMLODIPINE [Concomitant]
     Active Substance: AMLODIPINE BESYLATE
     Dosage: 5 MG, EVERYDAY
     Route: 048
  22. FEBUXOSTAT [Concomitant]
     Active Substance: FEBUXOSTAT
     Indication: Product used for unknown indication
     Dosage: 20 MG, EVERYDAY
     Route: 048
  23. FEBUXOSTAT [Concomitant]
     Active Substance: FEBUXOSTAT
     Dosage: 20 MG, EVERYDAY
     Route: 048
  24. JARDIANCE [Concomitant]
     Active Substance: EMPAGLIFLOZIN
     Indication: Product used for unknown indication
     Dosage: EVERYDAY
     Route: 048
     Dates: start: 202201

REACTIONS (6)
  - Autoimmune hepatitis [Fatal]
  - Hypothyroidism [Recovering/Resolving]
  - Malignant neoplasm progression [Unknown]
  - Cytomegalovirus hepatitis [Recovering/Resolving]
  - Hepatic failure [Fatal]
  - Myelosuppression [Unknown]

NARRATIVE: CASE EVENT DATE: 20210917
